FAERS Safety Report 4747205-8 (Version None)
Quarter: 2005Q3

REPORT INFORMATION
  Report Type: 
  Country: None (occurrence: None)
  Receive Date: 20050815
  Receipt Date: 20050316
  Transmission Date: 20060218
  Serious: Yes (Hospitalization)
  Sender: FDA-Public Use
  Company Number: MEDI-0003034

PATIENT
  Age: 3 Month
  Sex: Male

DRUGS (2)
  1. SYNAGIS [Suspect]
     Indication: ANTIVIRAL PROPHYLAXIS
     Dosage: 45 MG, 1 IN 30 D, INTRAMUSCULAR;  1 IN 30 D, INTRAMUSCULAR
     Route: 030
     Dates: start: 20050203, end: 20050302
  2. SYNAGIS [Suspect]
     Indication: ANTIVIRAL PROPHYLAXIS
     Dosage: 45 MG, 1 IN 30 D, INTRAMUSCULAR;  1 IN 30 D, INTRAMUSCULAR
     Route: 030
     Dates: start: 20050203

REACTIONS (6)
  - APNOEA [None]
  - COUGH [None]
  - CYANOSIS [None]
  - LUNG INFILTRATION [None]
  - RESPIRATORY FAILURE [None]
  - RESPIRATORY SYNCYTIAL VIRUS INFECTION [None]
